FAERS Safety Report 23953006 (Version 1)
Quarter: 2024Q2

REPORT INFORMATION
  Report Type: Other
  Country: AU (occurrence: None)
  Receive Date: 20240608
  Receipt Date: 20240608
  Transmission Date: 20240716
  Serious: No
  Sender: FDA-Public Use
  Company Number: AU-ROCHE-3577116

PATIENT
  Age: 38 Year
  Sex: Female

DRUGS (4)
  1. OCRELIZUMAB [Suspect]
     Active Substance: OCRELIZUMAB
     Indication: Multiple sclerosis
     Route: 065
  2. INTERFERON [Concomitant]
     Active Substance: INTERFERON
  3. GLATIRAMER ACETATE [Concomitant]
     Active Substance: GLATIRAMER ACETATE
  4. NATALIZUMAB [Concomitant]
     Active Substance: NATALIZUMAB

REACTIONS (5)
  - Colitis [Recovering/Resolving]
  - Oesophageal ulcer [Recovering/Resolving]
  - Abscess intestinal [Recovering/Resolving]
  - Granuloma [Recovering/Resolving]
  - JC virus infection [Unknown]
